FAERS Safety Report 7826234-1 (Version None)
Quarter: 2011Q4

REPORT INFORMATION
  Report Type: 
  Country: None (occurrence: None)
  Receive Date: 20111020
  Receipt Date: 20111013
  Transmission Date: 20120403
  Serious: Yes (Hospitalization)
  Sender: FDA-Public Use
  Company Number: US-BIOGENIDEC-2011BI039162

PATIENT
  Sex: Female

DRUGS (5)
  1. WELLBUTRIN [Concomitant]
  2. AVONEX [Suspect]
     Route: 030
     Dates: start: 20100827
  3. AVONEX [Suspect]
     Route: 030
     Dates: start: 20030602, end: 20070517
  4. AVONEX [Suspect]
     Indication: MULTIPLE SCLEROSIS
     Route: 030
     Dates: start: 19990221, end: 20000202
  5. AVONEX [Suspect]
     Route: 030
     Dates: start: 20091204, end: 20100514

REACTIONS (4)
  - DEPRESSION [None]
  - NASOPHARYNGITIS [None]
  - PNEUMONIA [None]
  - MULTIPLE ALLERGIES [None]
